FAERS Safety Report 15760858 (Version 3)
Quarter: 2019Q2

REPORT INFORMATION
  Report Type: Spontaneous
  Country: US (occurrence: US)
  Receive Date: 20181226
  Receipt Date: 20190606
  Transmission Date: 20190711
  Serious: No
  Sender: FDA-Public Use
  Company Number: US-PFIZER INC-2018529129

PATIENT
  Age: 76 Year
  Sex: Female

DRUGS (2)
  1. EUCRISA [Suspect]
     Active Substance: CRISABOROLE
     Indication: DERMATITIS
     Dosage: AS NEEDED (AS NEEDED/ TWO TIMES A DAY)
     Route: 061
     Dates: start: 20190118, end: 20190120
  2. EUCRISA [Suspect]
     Active Substance: CRISABOROLE
     Dosage: UNK, AS NEEDED (QD-BID)
     Route: 061
     Dates: start: 20190120, end: 20190122

REACTIONS (8)
  - Urticaria [Unknown]
  - Erythema [Unknown]
  - Burning sensation [Unknown]
  - Product use issue [Unknown]
  - Swelling [Unknown]
  - Pruritus [Unknown]
  - Pain [Unknown]
  - Off label use [Unknown]

NARRATIVE: CASE EVENT DATE: 20190120
